FAERS Safety Report 18211133 (Version 1)
Quarter: 2020Q3

REPORT INFORMATION
  Report Type: Other
  Country: JP (occurrence: JP)
  Receive Date: 20200830
  Receipt Date: 20200830
  Transmission Date: 20201103
  Serious: Yes (Hospitalization)
  Sender: FDA-Public Use
  Company Number: JP-ROCHE-2666708

PATIENT
  Age: 45 Year
  Sex: Female

DRUGS (2)
  1. BEVACIZUMAB. [Suspect]
     Active Substance: BEVACIZUMAB
     Indication: BREAST CANCER METASTATIC
     Dosage: ONE CYCLE WAS 28 DAYS AND BEVACIZUMAB WAS ADMINISTERED ON DAYS 1 AND 8
     Route: 065
  2. PACLITAXEL. [Suspect]
     Active Substance: PACLITAXEL
     Indication: BREAST CANCER METASTATIC
     Dosage: ONE CYCLE WAS 28 DAYS AND PACLITAXEL WAS ADMINISTERED ON DAYS 1, 8 AND 15.
     Route: 065

REACTIONS (3)
  - Bronchopleural fistula [Recovered/Resolved]
  - Impaired healing [Recovered/Resolved]
  - Pneumothorax [Recovered/Resolved]
